FAERS Safety Report 21081139 (Version 1)
Quarter: 2022Q3

REPORT INFORMATION
  Report Type: Spontaneous
  Country: US (occurrence: US)
  Receive Date: 20220714
  Receipt Date: 20220714
  Transmission Date: 20221027
  Serious: No
  Sender: FDA-Public Use
  Company Number: US-SUN PHARMACEUTICAL INDUSTRIES LTD-2022R1-335388

PATIENT
  Sex: Male

DRUGS (2)
  1. YONSA [Suspect]
     Active Substance: ABIRATERONE ACETATE
     Indication: Dysphonia
     Dosage: UNK, BID
     Route: 065
  2. PREDNISONE [Suspect]
     Active Substance: PREDNISONE
     Indication: Product used for unknown indication
     Dosage: UNK
     Route: 065

REACTIONS (7)
  - Extra dose administered [Unknown]
  - Dysphonia [Unknown]
  - Product prescribing error [Unknown]
  - Treatment noncompliance [Unknown]
  - Yellow skin [Unknown]
  - Drug ineffective [Unknown]
  - Underdose [Unknown]
